FAERS Safety Report 17550690 (Version 1)
Quarter: 2020Q1

REPORT INFORMATION
  Report Type: Spontaneous
  Country: IT (occurrence: IT)
  Receive Date: 20200317
  Receipt Date: 20200317
  Transmission Date: 20200409
  Serious: Yes (Other)
  Sender: FDA-Public Use
  Company Number: IT-MYLANLABS-2020M1028075

PATIENT
  Age: 28 Year
  Sex: Male
  Weight: 85 kg

DRUGS (3)
  1. RISPERDAL [Suspect]
     Active Substance: RISPERIDONE
     Indication: PSYCHOTIC DISORDER
     Dosage: UNK
     Route: 048
     Dates: start: 20180615
  2. RISPERDAL [Suspect]
     Active Substance: RISPERIDONE
     Indication: PSYCHOTIC DISORDER
     Dosage: UNK
     Route: 048
     Dates: start: 20180615
  3. VENLAFAXINE [Suspect]
     Active Substance: VENLAFAXINE HYDROCHLORIDE
     Indication: PARANOIA
     Dosage: 37.5 MILLIGRAM, QD
     Route: 048
     Dates: start: 20180223, end: 20180615

REACTIONS (12)
  - Bradykinesia [Unknown]
  - Hypercholesterolaemia [Unknown]
  - Salivary hypersecretion [Unknown]
  - Polyuria [Unknown]
  - Hyperprolactinaemia [Unknown]
  - Dizziness [Unknown]
  - Galactorrhoea [Unknown]
  - Breast pain [Unknown]
  - Nausea [Unknown]
  - Polydipsia psychogenic [Unknown]
  - Vision blurred [Unknown]
  - Weight increased [Unknown]

NARRATIVE: CASE EVENT DATE: 20181218
